FAERS Safety Report 9172890 (Version 1)
Quarter: 2013Q1

REPORT INFORMATION
  Report Type: Spontaneous
  Country: US (occurrence: US)
  Receive Date: 20130319
  Receipt Date: 20130319
  Transmission Date: 20140127
  Serious: No
  Sender: FDA-Public Use
  Company Number: US-ASTRAZENECA-2013SE10537

PATIENT
  Age: 56 Year
  Sex: Female
  Weight: 99.8 kg

DRUGS (1)
  1. SYMBICORT [Suspect]
     Indication: CHRONIC OBSTRUCTIVE PULMONARY DISEASE
     Dosage: TWO PUFFS, TWO TIMES A DAY
     Route: 055
     Dates: start: 2010

REACTIONS (4)
  - Back disorder [Unknown]
  - Bronchitis [Unknown]
  - Malaise [Unknown]
  - Musculoskeletal discomfort [Unknown]
